FAERS Safety Report 6541709-3 (Version None)
Quarter: 2010Q1

REPORT INFORMATION
  Report Type: 
  Country: None (occurrence: None)
  Receive Date: 20100119
  Receipt Date: 20100115
  Transmission Date: 20100710
  Serious: Yes (Other)
  Sender: FDA-Public Use
  Company Number: US-SANOFI-AVENTIS-2010SA002273

PATIENT
  Age: 85 Year
  Sex: Male
  Weight: 59 kg

DRUGS (6)
  1. MULTAQ [Suspect]
     Indication: ATRIAL FLUTTER
     Route: 048
     Dates: start: 20091208, end: 20091223
  2. BENICAR [Concomitant]
     Route: 065
     Dates: start: 20070101
  3. LASIX [Concomitant]
     Dosage: 20MG TO 40MG DAILY
     Route: 065
     Dates: start: 20070101
  4. POTASSIUM CHLORIDE [Concomitant]
     Route: 065
     Dates: start: 20070101
  5. COUMADIN [Concomitant]
     Indication: ATRIAL FLUTTER
     Dosage: 5/2.5
     Route: 065
     Dates: start: 20091101
  6. CITALOPRAM [Concomitant]
     Indication: DEPRESSION
     Route: 065
     Dates: start: 20080101

REACTIONS (6)
  - CARDIAC FAILURE CONGESTIVE [None]
  - DYSPNOEA [None]
  - FATIGUE [None]
  - GAIT DISTURBANCE [None]
  - OEDEMA PERIPHERAL [None]
  - WHEEZING [None]
